FAERS Safety Report 4911196-7 (Version None)
Quarter: 2006Q1

REPORT INFORMATION
  Report Type: 
  Country: None (occurrence: None)
  Receive Date: 20060209
  Receipt Date: 20060201
  Transmission Date: 20060701
  Serious: Yes (Hospitalization)
  Sender: FDA-Public Use
  Company Number: 001#1#2006-00020

PATIENT

DRUGS (2)
  1. ALPROSTADIL [Suspect]
     Indication: EXTREMITY NECROSIS
     Dosage: 40 MCG
  2. ALPROSTADIL [Suspect]
     Indication: PULMONARY VASCULAR DISORDER
     Dosage: 40 MCG

REACTIONS (1)
  - PULMONARY OEDEMA [None]
